FAERS Safety Report 8227049-5 (Version None)
Quarter: 2012Q1

REPORT INFORMATION
  Report Type: 
  Country: None (occurrence: None)
  Receive Date: 20120322
  Receipt Date: 20120316
  Transmission Date: 20120608
  Serious: No
  Sender: FDA-Public Use
  Company Number: US-PFIZER INC-2012071125

PATIENT
  Sex: Female

DRUGS (1)
  1. XALKORI [Suspect]
     Indication: LUNG NEOPLASM
     Dosage: 250 MG, UNK
     Dates: start: 20120308

REACTIONS (4)
  - NAUSEA [None]
  - DIZZINESS [None]
  - VOMITING [None]
  - DIARRHOEA [None]
